FAERS Safety Report 22612897 (Version 1)
Quarter: 2023Q2

REPORT INFORMATION
  Report Type: Spontaneous
  Country: US (occurrence: US)
  Receive Date: 20230617
  Receipt Date: 20230617
  Transmission Date: 20230722
  Serious: No
  Sender: FDA-Public Use
  Company Number: US-GSK-US2023AMR081285

PATIENT
  Sex: Female

DRUGS (1)
  1. BENLYSTA [Suspect]
     Active Substance: BELIMUMAB
     Indication: Product used for unknown indication
     Dosage: UNK
     Route: 058

REACTIONS (6)
  - Injection site pain [Unknown]
  - Nasal congestion [Unknown]
  - Productive cough [Unknown]
  - Muscle spasms [Unknown]
  - Nasopharyngitis [Unknown]
  - Cough [Unknown]
